FAERS Safety Report 8130424-0 (Version None)
Quarter: 2012Q1

REPORT INFORMATION
  Report Type: 
  Country: None (occurrence: None)
  Receive Date: 20120210
  Receipt Date: 20120130
  Transmission Date: 20120608
  Serious: Yes (Death, Other)
  Sender: FDA-Public Use
  Company Number: IT-ROCHE-795851

PATIENT

DRUGS (7)
  1. CYCLOPHOSPHAMIDE [Suspect]
     Indication: MANTLE CELL LYMPHOMA
     Route: 065
  2. MABTHERA [Suspect]
     Indication: MANTLE CELL LYMPHOMA
     Route: 065
  3. CYTARABINE [Suspect]
     Indication: MANTLE CELL LYMPHOMA
  4. VINCRISTINE [Suspect]
     Indication: MANTLE CELL LYMPHOMA
     Dosage: AT A MAXIMUM DOSE OF 2 MG
     Route: 065
  5. METHOTREXATE [Suspect]
     Indication: MANTLE CELL LYMPHOMA
     Route: 040
  6. DEXAMETHASONE [Suspect]
     Indication: MANTLE CELL LYMPHOMA
     Route: 065
  7. DOXORUBICIN HCL [Suspect]
     Indication: MANTLE CELL LYMPHOMA
     Route: 065

REACTIONS (16)
  - INFECTION [None]
  - EPIDERMOLYSIS [None]
  - CARDIAC FAILURE [None]
  - BRONCHOPULMONARY ASPERGILLOSIS [None]
  - EMBOLISM [None]
  - PANCREATITIS ACUTE [None]
  - NEUROPATHY PERIPHERAL [None]
  - NEUTROPENIA [None]
  - ASTRINGENT THERAPY [None]
  - ILEUS PARALYTIC [None]
  - ANAEMIA [None]
  - INFUSION RELATED REACTION [None]
  - SINUS BRADYCARDIA [None]
  - ATRIAL FIBRILLATION [None]
  - SEPSIS [None]
  - THROMBOCYTOPENIA [None]
